FAERS Safety Report 23962494 (Version 1)
Quarter: 2024Q2

REPORT INFORMATION
  Report Type: Spontaneous
  Country: FR (occurrence: FR)
  Receive Date: 20240611
  Receipt Date: 20240611
  Transmission Date: 20240716
  Serious: Yes (Hospitalization, Other)
  Sender: FDA-Public Use
  Company Number: None

PATIENT
  Age: 44 Year
  Sex: Male

DRUGS (2)
  1. DIAZEPAM [Suspect]
     Active Substance: DIAZEPAM
     Indication: Product used for unknown indication
     Dosage: TIME INTERVAL: 0.33333333 DAYS: 10 MG MORNING, NOON AND EVENING
     Route: 048
     Dates: start: 2022
  2. ALCOHOL [Suspect]
     Active Substance: ALCOHOL
     Indication: Product used for unknown indication
     Dosage: 2 BEERS / DAY OF 50 CL + STRONG ALCOHOL, ALCOHOL (DRINK)
     Route: 048
     Dates: start: 2022

REACTIONS (2)
  - Withdrawal syndrome [Recovered/Resolved]
  - Drug use disorder [Not Recovered/Not Resolved]
